FAERS Safety Report 23921038 (Version 1)
Quarter: 2024Q2

REPORT INFORMATION
  Report Type: Spontaneous
  Country: US (occurrence: None)
  Receive Date: 20240530
  Receipt Date: 20240530
  Transmission Date: 20240716
  Serious: Yes (Life-Threatening, Hospitalization)
  Sender: FDA-Public Use
  Company Number: None

PATIENT
  Age: 76 Year
  Sex: Male

DRUGS (1)
  1. LISINOPRIL [Suspect]
     Active Substance: LISINOPRIL
     Indication: Angioedema
     Dosage: FREQUENCY : DAILY;?
     Route: 048
     Dates: start: 20230606, end: 20230610

REACTIONS (1)
  - Angioedema [None]

NARRATIVE: CASE EVENT DATE: 20230610
